FAERS Safety Report 19469891 (Version 1)
Quarter: 2021Q2

REPORT INFORMATION
  Report Type: Report from Study
  Country: US (occurrence: US)
  Receive Date: 20210628
  Receipt Date: 20210628
  Transmission Date: 20210717
  Serious: Yes (Other)
  Sender: FDA-Public Use
  Company Number: US-GILEAD-2021-0537990

PATIENT

DRUGS (2)
  1. EMTRICITABINE/TENOFOVIR ALAFENAMIDE [Suspect]
     Active Substance: EMTRICITABINE\TENOFOVIR
     Indication: HIV INFECTION
     Dosage: UNK DOSAGE FORM
     Route: 064
  2. TIVICAY [Suspect]
     Active Substance: DOLUTEGRAVIR SODIUM
     Indication: HIV INFECTION
     Route: 064

REACTIONS (3)
  - Congenital choroid plexus cyst [Unknown]
  - Foetal exposure during pregnancy [Not Recovered/Not Resolved]
  - Hypoplastic nasal cartilage [Unknown]

NARRATIVE: CASE EVENT DATE: 20201106
